FAERS Safety Report 8154637-7 (Version None)
Quarter: 2012Q1

REPORT INFORMATION
  Report Type: 
  Country: None (occurrence: None)
  Receive Date: 20120221
  Receipt Date: 20120214
  Transmission Date: 20120608
  Serious: Yes (Other)
  Sender: FDA-Public Use
  Company Number: GB-PFIZER INC-2012007750

PATIENT
  Age: 21 Year
  Sex: Male
  Weight: 67 kg

DRUGS (10)
  1. DEPO-MEDRONE W/ LIDOCAINE [Concomitant]
     Indication: ARTHRITIS
     Dosage: 80 MG/2ML, UNK
     Route: 014
     Dates: start: 20111011
  2. LOPERAMIDE [Concomitant]
     Indication: COLOSTOMY
     Dosage: 2 MG, 2X/DAY, AS NEEDED
     Route: 048
     Dates: start: 20080601
  3. ESCITALOPRAM [Concomitant]
     Indication: DEPRESSION
     Dosage: 10 MG, 1X/DAY, ONCE IN THE MORNING
     Route: 048
     Dates: start: 20110701, end: 20111201
  4. PARACETAMOL [Concomitant]
     Indication: PROCEDURAL PAIN
     Dosage: UNK
     Route: 048
     Dates: start: 20080601
  5. SULFASALAZINE [Suspect]
     Indication: RHEUMATOID ARTHRITIS
     Dosage: 500 MG, 5 DAILY IN DIVIDED DOSES
     Route: 048
     Dates: start: 20110801, end: 20111001
  6. SULFASALAZINE [Suspect]
     Indication: COLITIS ULCERATIVE
  7. ZOPICLONE [Concomitant]
     Indication: INSOMNIA
     Dosage: 3.75 MG, ONE AT NIGHT AS NEEDED
     Route: 048
     Dates: start: 20090601, end: 20111201
  8. NAPROXEN [Concomitant]
     Indication: ARTHRITIS
     Dosage: 250 MG, 3X/DAY
     Route: 048
     Dates: start: 20110601, end: 20111201
  9. LOPERAMIDE [Concomitant]
     Indication: DIARRHOEA
  10. OLANZAPINE [Concomitant]
     Indication: PSYCHOTIC DISORDER
     Dosage: 5 AT NIGHT
     Route: 048
     Dates: start: 20090601, end: 20111101

REACTIONS (2)
  - LIVER FUNCTION TEST ABNORMAL [None]
  - DRUG INEFFECTIVE [None]
